FAERS Safety Report 6381639-3 (Version None)
Quarter: 2009Q3

REPORT INFORMATION
  Report Type: 
  Country: None (occurrence: None)
  Receive Date: 20090930
  Receipt Date: 20090923
  Transmission Date: 20100115
  Serious: Yes (Hospitalization)
  Sender: FDA-Public Use
  Company Number: US-BIOGENIDEC-2009BI030617

PATIENT
  Age: 28 Year
  Sex: Female

DRUGS (1)
  1. TYSABRI [Suspect]
     Indication: MULTIPLE SCLEROSIS
     Route: 042
     Dates: start: 20090114

REACTIONS (4)
  - BLOOD PRESSURE ABNORMAL [None]
  - LEFT VENTRICULAR HYPERTROPHY [None]
  - MITRAL VALVE PROLAPSE [None]
  - PNEUMONIA [None]
